FAERS Safety Report 4766834-9 (Version None)
Quarter: 2005Q3

REPORT INFORMATION
  Report Type: 
  Country: None (occurrence: None)
  Receive Date: 20050912
  Receipt Date: 20050824
  Transmission Date: 20060218
  Serious: Yes (Hospitalization)
  Sender: FDA-Public Use
  Company Number: 12227

PATIENT
  Age: 68 Year
  Sex: Female
  Weight: 92.5338 kg

DRUGS (15)
  1. FLUOROURACIL [Suspect]
     Indication: COLORECTAL CANCER
  2. FLUOROURACIL [Suspect]
     Indication: METASTASES TO LIVER
  3. LEUCOVORIN [Suspect]
     Indication: COLORECTAL CANCER
  4. LEUCOVORIN [Suspect]
     Indication: METASTASES TO LIVER
  5. ELOXANTIN [Suspect]
     Indication: COLORECTAL CANCER
     Dosage: 165 MG PER_CYCLE
     Dates: start: 20050725, end: 20050725
  6. ELOXANTIN [Suspect]
     Indication: METASTASES TO LIVER
     Dosage: 165 MG PER_CYCLE
     Dates: start: 20050725, end: 20050725
  7. AVASTIN [Suspect]
     Indication: COLORECTAL CANCER
     Dosage: 455 MG PER_CYCLE
     Dates: start: 20050725, end: 20050725
  8. AVASTIN [Suspect]
     Indication: METASTASES TO LIVER
     Dosage: 455 MG PER_CYCLE
     Dates: start: 20050725, end: 20050725
  9. SYNTHROID [Concomitant]
  10. HYDROCHLOROTHIAZIDE [Concomitant]
  11. DILANTIN [Concomitant]
  12. PROZAC [Concomitant]
  13. PERCOCET [Concomitant]
  14. XANAX [Concomitant]
  15. ZOFRAN [Concomitant]

REACTIONS (3)
  - DIALYSIS [None]
  - PYREXIA [None]
  - RENAL FAILURE [None]
